FAERS Safety Report 9548749 (Version 1)
Quarter: 2013Q2

REPORT INFORMATION
  Report Type: Spontaneous
  Country: US (occurrence: None)
  Receive Date: 20130627
  Receipt Date: 20130627
  Transmission Date: 20140414
  Serious: No
  Sender: FDA-Public Use
  Company Number: 1000044133

PATIENT
  Age: 73 Year
  Sex: Female

DRUGS (9)
  1. LINZESS [Suspect]
     Indication: CONSTIPATION
     Route: 048
     Dates: start: 20130321, end: 20130328
  2. MIRALAX [Concomitant]
  3. WARFARIN [Concomitant]
  4. OMEPRAZOLE [Concomitant]
  5. TOPROL (METOPROLOL SUCCINATE) [Concomitant]
  6. SIMVASTATIN [Concomitant]
  7. VIT B12 (CYANOCOBALAMIN) [Concomitant]
  8. CALCIUM [Concomitant]
  9. MAGNESIUM [Concomitant]

REACTIONS (2)
  - Drug ineffective [None]
  - Wheezing [None]
